FAERS Safety Report 8099697-7 (Version None)
Quarter: 2012Q1

REPORT INFORMATION
  Report Type: 
  Country: None (occurrence: None)
  Receive Date: 20120129
  Receipt Date: 20110906
  Transmission Date: 20120608
  Serious: No
  Sender: FDA-Public Use
  Company Number: US-ABBOTT-11P-163-0852020-00

PATIENT
  Age: 64 Year
  Sex: Female

DRUGS (6)
  1. HUMIRA [Suspect]
     Indication: PSORIASIS
     Dates: start: 20070501
  2. PROVENTIL [Concomitant]
     Indication: ASTHMA
     Dosage: INHALER, EMERGENCY USE AS REQUIRED
  3. PULMICORT-100 [Concomitant]
     Indication: ASTHMA
     Dosage: INHALER
  4. MULTI-VITAMINS [Concomitant]
     Indication: MEDICAL DIET
     Route: 048
  5. CPAP [Concomitant]
     Indication: PRODUCT USED FOR UNKNOWN INDICATION
     Dosage: 5 CMH20 VIA MASK EVERY NIGHT
  6. FLONASE [Concomitant]
     Indication: HYPERSENSITIVITY
     Dosage: TWO SQUIRTS IN EACH NARE EVERY DAY

REACTIONS (7)
  - CARDIAC VALVE DISEASE [None]
  - INJECTION SITE PAIN [None]
  - NEUROPATHY PERIPHERAL [None]
  - GASTROOESOPHAGEAL REFLUX DISEASE [None]
  - OSTEOPENIA [None]
  - HYPERTENSION [None]
  - FIBROMYALGIA [None]
